APPROVED DRUG PRODUCT: DOXYCYCLINE
Active Ingredient: DOXYCYCLINE HYCLATE
Strength: EQ 200MG BASE/VIAL
Dosage Form/Route: INJECTABLE;INJECTION
Application: A062569 | Product #002
Applicant: HIKMA PHARMACEUTICALS USA INC
Approved: Mar 9, 1988 | RLD: No | RS: No | Type: DISCN